FAERS Safety Report 12575607 (Version 2)
Quarter: 2016Q3

REPORT INFORMATION
  Report Type: Spontaneous
  Country: JP (occurrence: JP)
  Receive Date: 20160720
  Receipt Date: 20160929
  Transmission Date: 20161109
  Serious: Yes (Death, Hospitalization)
  Sender: FDA-Public Use
  Company Number: JP-ELI_LILLY_AND_COMPANY-JP201606009440

PATIENT
  Age: 55 Year
  Sex: Male
  Weight: 60.2 kg

DRUGS (8)
  1. MEDICON                            /00048102/ [Concomitant]
     Active Substance: DEXTROMETHORPHAN HYDROBROMIDE
     Dosage: 15 MG, TID
     Route: 048
     Dates: start: 20160507
  2. CYRAMZA [Suspect]
     Active Substance: RAMUCIRUMAB
     Indication: GASTRIC CANCER STAGE IV
     Dosage: 480 MG, DAY1, 15 OF EVERY 4 WEEKS
     Route: 042
     Dates: start: 20160308, end: 20160603
  3. MAGMITT [Concomitant]
     Active Substance: MAGNESIUM OXIDE
     Indication: CONSTIPATION
     Dosage: 250 MG, TID
     Route: 048
     Dates: start: 20160108, end: 20160623
  4. PACLITAXEL. [Concomitant]
     Active Substance: PACLITAXEL
     Indication: GASTRIC CANCER STAGE IV
     Dosage: 130 MG, DAY1, 8, 15 OF EVERY 4WEEKS
     Route: 042
     Dates: start: 20160308, end: 20160603
  5. LYRICA [Concomitant]
     Active Substance: PREGABALIN
     Indication: NEURALGIA
     Dosage: 25 MG, QID
     Route: 048
     Dates: start: 20160226
  6. LYRICA [Concomitant]
     Active Substance: PREGABALIN
     Dosage: 25 MG, BID
     Route: 048
     Dates: start: 20160507, end: 20160623
  7. GOSHAJINKIGAN [Concomitant]
     Active Substance: HERBALS
     Indication: NEUROPATHY PERIPHERAL
     Dosage: 2.5 G, TID
     Route: 048
     Dates: start: 20150327, end: 20160623
  8. CARBOCISTEINE [Concomitant]
     Active Substance: CARBOCYSTEINE
     Dosage: 250 MG, TID
     Dates: start: 20160507

REACTIONS (6)
  - Seizure [Fatal]
  - Pneumonia [Recovering/Resolving]
  - Nausea [Unknown]
  - Headache [Fatal]
  - Metastases to meninges [Fatal]
  - Malignant neoplasm progression [Fatal]

NARRATIVE: CASE EVENT DATE: 20160429
